FAERS Safety Report 7315468-0 (Version None)
Quarter: 2011Q1

REPORT INFORMATION
  Report Type: 
  Country: None (occurrence: None)
  Receive Date: 20110225
  Receipt Date: 20110222
  Transmission Date: 20110831
  Serious: Yes (Life-Threatening)
  Sender: FDA-Public Use
  Company Number: US-PFIZER INC-2011037607

PATIENT
  Age: 65 Year
  Sex: Male

DRUGS (7)
  1. CIPROFLOXACIN [Concomitant]
     Indication: SEPSIS
  2. ACETYLSALICYLIC ACID [Concomitant]
  3. VANCOMYCIN HCL [Suspect]
     Route: 042
  4. AMLODIPINE [Concomitant]
  5. METFORMIN [Concomitant]
  6. PIPERACILLIN AND TAZOBACTAM [Suspect]
     Indication: SEPSIS
  7. WARFARIN [Concomitant]

REACTIONS (1)
  - DRUG RASH WITH EOSINOPHILIA AND SYSTEMIC SYMPTOMS [None]
